FAERS Safety Report 11189557 (Version 1)
Quarter: 2015Q2

REPORT INFORMATION
  Report Type: Spontaneous
  Country: FR (occurrence: None)
  Receive Date: 20150611
  Receipt Date: 20150611
  Transmission Date: 20150821
  Serious: Yes (Other)
  Sender: FDA-Public Use
  Company Number: ABR_02238_2015

PATIENT
  Age: 67 Year
  Sex: Female

DRUGS (1)
  1. SOTALOL HYDROCHLORIDE. [Suspect]
     Active Substance: SOTALOL HYDROCHLORIDE
     Indication: PRODUCT USED FOR UNKNOWN INDICATION
     Dosage: (20 MG QD)
     Dates: start: 2007, end: 201401

REACTIONS (8)
  - Organising pneumonia [None]
  - Dyspnoea [None]
  - Pulmonary fibrosis [None]
  - Lymphocyte count increased [None]
  - Arterial thrombosis [None]
  - Adenocarcinoma of colon [None]
  - Chest discomfort [None]
  - Adenocarcinoma pancreas [None]

NARRATIVE: CASE EVENT DATE: 201406
